FAERS Safety Report 12215324 (Version 1)
Quarter: 2016Q1

REPORT INFORMATION
  Report Type: Spontaneous
  Country: PL (occurrence: PL)
  Receive Date: 20160328
  Receipt Date: 20160328
  Transmission Date: 20160526
  Serious: Yes (Hospitalization)
  Sender: FDA-Public Use
  Company Number: PL-MYLANLABS-2016M1012976

PATIENT

DRUGS (4)
  1. CISPLATIN. [Suspect]
     Active Substance: CISPLATIN
     Indication: TESTICULAR SEMINOMA (PURE)
     Dosage: 42MG
     Route: 065
  2. ETOPOSIDE. [Suspect]
     Active Substance: ETOPOSIDE
     Indication: TESTICULAR SEMINOMA (PURE)
     Dosage: 210MG
     Route: 065
  3. PREDNISONE. [Suspect]
     Active Substance: PREDNISONE
     Indication: TESTICULAR SEMINOMA (PURE)
     Dosage: 10MG
     Route: 065
  4. BLEOMYCIN [Suspect]
     Active Substance: BLEOMYCIN SULFATE
     Indication: TESTICULAR SEMINOMA (PURE)
     Dosage: 30MG
     Route: 065

REACTIONS (1)
  - Acute coronary syndrome [Recovering/Resolving]
